FAERS Safety Report 6043682-3 (Version None)
Quarter: 2009Q1

REPORT INFORMATION
  Report Type: 
  Country: None (occurrence: None)
  Receive Date: 20090115
  Receipt Date: 20090115
  Transmission Date: 20090719
  Serious: No
  Sender: FDA-Public Use
  Company Number: None

PATIENT
  Age: 20 Month
  Sex: Female
  Weight: 10.4327 kg

DRUGS (1)
  1. SINGULAIR [Suspect]
     Indication: ASTHMA
     Dosage: 4 MG DAILY PO
     Route: 048
     Dates: start: 20080801, end: 20081201

REACTIONS (5)
  - ABNORMAL BEHAVIOUR [None]
  - DECREASED APPETITE [None]
  - IRRITABILITY [None]
  - POOR QUALITY SLEEP [None]
  - WEIGHT DECREASED [None]
